FAERS Safety Report 25504845 (Version 1)
Quarter: 2025Q3

REPORT INFORMATION
  Report Type: Spontaneous
  Country: US (occurrence: US)
  Receive Date: 20250702
  Receipt Date: 20250702
  Transmission Date: 20251021
  Serious: No
  Sender: AMGEN
  Company Number: US-AMGEN-USASP2025129219

PATIENT

DRUGS (2)
  1. EVENITY [Suspect]
     Active Substance: ROMOSOZUMAB-AQQG
     Indication: Product used for unknown indication
     Dosage: UNK UNK, QMO
     Route: 065
  2. IBANDRONATE SODIUM [Concomitant]
     Active Substance: IBANDRONATE SODIUM

REACTIONS (12)
  - Myalgia [Unknown]
  - Onychoclasis [Unknown]
  - Amnesia [Unknown]
  - Arthralgia [Unknown]
  - Gait disturbance [Unknown]
  - Dysstasia [Unknown]
  - Alopecia [Unknown]
  - Trichorrhexis [Unknown]
  - Hypoaesthesia [Unknown]
  - Brain fog [Unknown]
  - Dizziness [Unknown]
  - Vision blurred [Unknown]
